FAERS Safety Report 19732334 (Version 2)
Quarter: 2025Q2

REPORT INFORMATION
  Report Type: Spontaneous
  Country: IT (occurrence: IT)
  Receive Date: 20210822
  Receipt Date: 20250623
  Transmission Date: 20250716
  Serious: Yes (Disabling, Other)
  Sender: AUROBINDO
  Company Number: IT-ZENTIVA-2021-ZT-009997

PATIENT
  Age: 52 Year
  Sex: Male

DRUGS (1)
  1. TADALAFIL [Suspect]
     Active Substance: TADALAFIL
     Indication: Ischaemic stroke
     Route: 065

REACTIONS (4)
  - Dysarthria [Recovered/Resolved]
  - Hemiparesis [Recovered/Resolved]
  - Facial paresis [Recovered/Resolved]
  - Drug ineffective [Recovered/Resolved]
